FAERS Safety Report 23685614 (Version 3)
Quarter: 2025Q1

REPORT INFORMATION
  Report Type: Report from Study
  Country: US (occurrence: US)
  Receive Date: 20240329
  Receipt Date: 20250312
  Transmission Date: 20250408
  Serious: Yes (Other)
  Sender: ABBVIE
  Company Number: US-ABBVIE-5694720

PATIENT
  Age: 43 Year
  Sex: Female

DRUGS (2)
  1. HUMIRA [Suspect]
     Active Substance: ADALIMUMAB
     Indication: Rheumatoid arthritis
     Route: 058
     Dates: start: 20200404
  2. HUMIRA [Suspect]
     Active Substance: ADALIMUMAB
     Route: 058
     Dates: start: 20200417

REACTIONS (8)
  - Rotator cuff syndrome [Unknown]
  - Product administration error [Unknown]
  - Musculoskeletal disorder [Unknown]
  - Stress [Unknown]
  - Arthralgia [Unknown]
  - Limb injury [Unknown]
  - Needle issue [Unknown]
  - Depression [Unknown]

NARRATIVE: CASE EVENT DATE: 20230901
